FAERS Safety Report 7936410-5 (Version None)
Quarter: 2011Q4

REPORT INFORMATION
  Report Type: 
  Country: None (occurrence: None)
  Receive Date: 20111123
  Receipt Date: 20111118
  Transmission Date: 20120403
  Serious: Yes (Other)
  Sender: FDA-Public Use
  Company Number: US-PFIZER INC-2011276445

PATIENT
  Sex: Male
  Weight: 68.5 kg

DRUGS (11)
  1. FUROSEMIDE [Concomitant]
     Indication: FLUID IMBALANCE
     Dosage: 20 MG, 2X/DAY
  2. CHANTIX [Suspect]
     Indication: SMOKING CESSATION THERAPY
     Dosage: UNK
     Route: 048
     Dates: start: 20020101, end: 20020101
  3. METOPROLOL [Concomitant]
     Dosage: 25 MG, 2X/DAY
  4. CHANTIX [Suspect]
     Dosage: 0.5 MG, 2X/DAY
     Route: 048
     Dates: start: 20110101, end: 20110801
  5. CHANTIX [Suspect]
     Dosage: 0.5 MG, DAILY
     Route: 048
     Dates: start: 20110615, end: 20110101
  6. PLAVIX [Concomitant]
     Dosage: 10 MG, DAILY
     Route: 048
  7. ADVAIR DISKUS 100/50 [Concomitant]
     Indication: DYSPNOEA
     Dosage: 500MCG/50MCG
  8. KLOR-CON [Concomitant]
     Dosage: 10 MG, 2X/DAY
     Route: 048
  9. ALBUTEROL [Concomitant]
     Dosage: UNK
  10. SIMVASTATIN [Concomitant]
     Dosage: 40 MG, DAILY
  11. ACETYLSALICYLIC ACID [Concomitant]
     Dosage: 81 MG, DAILY

REACTIONS (3)
  - ROAD TRAFFIC ACCIDENT [None]
  - PULMONARY FUNCTION TEST ABNORMAL [None]
  - MYOCARDIAL INFARCTION [None]
